FAERS Safety Report 5206012-2 (Version None)
Quarter: 2007Q1

REPORT INFORMATION
  Report Type: 
  Country: None (occurrence: None)
  Receive Date: 20070108
  Receipt Date: 20061228
  Transmission Date: 20070707
  Serious: Yes (Other)
  Sender: FDA-Public Use
  Company Number: GBWYE972228DEC06

PATIENT

DRUGS (2)
  1. EFFEXOR [Suspect]
     Dosage: 37.5 MG FREQUENCY UNKNOWN, TRANSPLACENTAL
     Route: 064
     Dates: end: 20060801
  2. DIAZEPAM [Suspect]
     Dosage: 2MG AS NECESSARY; TRANSPLACENTAL
     Route: 064

REACTIONS (3)
  - DRUG EXPOSURE DURING PREGNANCY [None]
  - LIMB HYPOPLASIA CONGENITAL [None]
  - LIMB REDUCTION DEFECT [None]
